FAERS Safety Report 9483718 (Version 4)
Quarter: 2015Q2

REPORT INFORMATION
  Report Type: Spontaneous
  Country: US (occurrence: US)
  Receive Date: 20130828
  Receipt Date: 20150612
  Transmission Date: 20150821
  Serious: Yes (Hospitalization)
  Sender: FDA-Public Use
  Company Number: US-B.I. PHARMACEUTICALS,INC./RIDGEFIELD-2013-BI-26248BP

PATIENT
  Age: 12 Year
  Sex: Male
  Weight: 69.8 kg

DRUGS (12)
  1. DEPAKOTE [Suspect]
     Active Substance: DIVALPROEX SODIUM
     Dosage: 1000 MG
     Route: 048
     Dates: start: 20130617
  2. PROZAC [Suspect]
     Active Substance: FLUOXETINE HYDROCHLORIDE
     Indication: AFFECTIVE DISORDER
     Dosage: 10 MG
     Route: 048
     Dates: start: 20121108
  3. THORAZINE [Suspect]
     Active Substance: CHLORPROMAZINE
     Indication: AGGRESSION
  4. DEPAKOTE [Suspect]
     Active Substance: DIVALPROEX SODIUM
     Dosage: 750 MG
     Route: 048
     Dates: start: 20130621
  5. THORAZINE [Suspect]
     Active Substance: CHLORPROMAZINE
     Indication: AGITATION
     Dosage: 75 MG
     Route: 048
     Dates: start: 20130617
  6. DESYREL [Suspect]
     Active Substance: TRAZODONE HYDROCHLORIDE
     Indication: AFFECTIVE DISORDER
     Dosage: 25 MG
     Route: 048
     Dates: start: 20130108, end: 20130617
  7. DESYREL [Suspect]
     Active Substance: TRAZODONE HYDROCHLORIDE
     Dosage: 12.5 MG
     Route: 048
     Dates: start: 20130617
  8. VYVANSE [Suspect]
     Active Substance: LISDEXAMFETAMINE DIMESYLATE
     Dosage: 20 MG
     Route: 048
     Dates: start: 20130321, end: 20130924
  9. CATAPRES [Suspect]
     Active Substance: CLONIDINE HYDROCHLORIDE
     Indication: AFFECTIVE DISORDER
     Dosage: 0.2 MG
     Route: 048
     Dates: start: 20120301
  10. DEPAKOTE [Suspect]
     Active Substance: DIVALPROEX SODIUM
     Indication: AFFECTIVE DISORDER
     Dosage: 600 MG
     Route: 048
     Dates: start: 20120301
  11. VYVANSE [Suspect]
     Active Substance: LISDEXAMFETAMINE DIMESYLATE
     Indication: AFFECTIVE DISORDER
     Dosage: 40 MG
     Route: 048
     Dates: start: 20130321, end: 20130924
  12. THORAZINE [Suspect]
     Active Substance: CHLORPROMAZINE
     Indication: AFFECTIVE DISORDER
     Dosage: 60 MG
     Route: 048
     Dates: start: 20130326

REACTIONS (3)
  - Aggression [Recovered/Resolved]
  - Affective disorder [Recovered/Resolved]
  - Agitation [Recovered/Resolved]

NARRATIVE: CASE EVENT DATE: 20130921
